FAERS Safety Report 6454892-5 (Version None)
Quarter: 2009Q4

REPORT INFORMATION
  Report Type: 
  Country: None (occurrence: None)
  Receive Date: 20091118
  Receipt Date: 20091113
  Transmission Date: 20100525
  Serious: Yes (Death, Hospitalization)
  Sender: FDA-Public Use
  Company Number: 2009SP036387

PATIENT
  Age: 43 Year
  Sex: Male

DRUGS (4)
  1. TEMOZOLOMIDE [Suspect]
     Indication: GLIOBLASTOMA MULTIFORME
     Dosage: 300 MG;QD;PO
     Route: 048
     Dates: start: 20030801, end: 20060601
  2. PROCARBAZINE          (PROCARBAZINE) [Suspect]
     Indication: GLIOBLASTOMA MULTIFORME
  3. NIMUSTINE         (NIMUSTINE) [Suspect]
     Indication: GLIOBLASTOMA MULTIFORME
  4. VINCRISTINE [Suspect]
     Indication: GLIOBLASTOMA MULTIFORME

REACTIONS (9)
  - ACUTE MYELOID LEUKAEMIA [None]
  - BONE MARROW FAILURE [None]
  - HAEMATOLOGICAL MALIGNANCY [None]
  - MYELODYSPLASTIC SYNDROME [None]
  - NEUTROPENIA [None]
  - PYREXIA [None]
  - RASH PAPULAR [None]
  - SEPTIC SHOCK [None]
  - THROMBOCYTOPENIA [None]
